FAERS Safety Report 19661392 (Version 1)
Quarter: 2021Q3

REPORT INFORMATION
  Report Type: Spontaneous
  Country: US (occurrence: US)
  Receive Date: 20210805
  Receipt Date: 20210805
  Transmission Date: 20211014
  Serious: No
  Sender: FDA-Public Use
  Company Number: US-PFIZER INC-202100941201

PATIENT
  Age: 45 Year
  Sex: Female
  Weight: 102.49 kg

DRUGS (7)
  1. D3 50 [Concomitant]
     Dosage: UNK
  2. LETROZOLE. [Concomitant]
     Active Substance: LETROZOLE
     Dosage: UNK
  3. LOSARTAN POTASSIUM. [Concomitant]
     Active Substance: LOSARTAN POTASSIUM
     Dosage: UNK
  4. IBRANCE [Suspect]
     Active Substance: PALBOCICLIB
     Indication: BREAST CANCER FEMALE
     Dosage: 125 MG, DAILY (1 DAILY FOR 21 DAYS)
     Route: 048
     Dates: start: 20210203
  5. MULTIPLE VITAMINS [Concomitant]
     Active Substance: VITAMINS
     Dosage: UNK
  6. BUPROPION HCL [Concomitant]
     Active Substance: BUPROPION HYDROCHLORIDE
     Dosage: UNK
  7. HYDROCHLOROTHIAZIDE. [Concomitant]
     Active Substance: HYDROCHLOROTHIAZIDE
     Dosage: UNK

REACTIONS (3)
  - Joint stiffness [Unknown]
  - Arthralgia [Unknown]
  - Hepatic enzyme increased [Unknown]
